FAERS Safety Report 10163393 (Version 1)
Quarter: 2014Q2

REPORT INFORMATION
  Report Type: Spontaneous
  Country: US (occurrence: US)
  Receive Date: 20140509
  Receipt Date: 20140509
  Transmission Date: 20141212
  Serious: No
  Sender: FDA-Public Use
  Company Number: US-009507513-1405USA001408

PATIENT
  Sex: Male

DRUGS (1)
  1. OXYTROL FOR WOMEN [Suspect]
     Indication: HYPERTONIC BLADDER
     Dosage: UNK, UNKNOWN
     Route: 062
     Dates: start: 20140420

REACTIONS (6)
  - Pain [Unknown]
  - Discomfort [Recovering/Resolving]
  - Application site discolouration [Unknown]
  - Application site erythema [Not Recovered/Not Resolved]
  - Pruritus [Recovering/Resolving]
  - Off label use [Unknown]
